FAERS Safety Report 19198885 (Version 1)
Quarter: 2021Q2

REPORT INFORMATION
  Report Type: Report from Study
  Country: FR (occurrence: FR)
  Receive Date: 20210430
  Receipt Date: 20210430
  Transmission Date: 20210717
  Serious: Yes (Hospitalization)
  Sender: FDA-Public Use
  Company Number: NVSC2021FR094392

PATIENT
  Age: 60 Year
  Sex: Male
  Weight: 82.2 kg

DRUGS (3)
  1. IDARUBICIN [Suspect]
     Active Substance: IDARUBICIN
     Indication: ACUTE MYELOID LEUKAEMIA
     Dosage: 18 MG / D1 D2 D3 D4 D5 ~ 9 MG/M? TOTAL DOSE : 90 MG
     Route: 041
     Dates: start: 20210305, end: 20210309
  2. CGP 41251 / PKC 412A [Suspect]
     Active Substance: MIDOSTAURIN
     Indication: ACUTE MYELOID LEUKAEMIA
     Dosage: 100 MG, EVERY 2 DAY/ 50 MG MORNING AND EVENING; TOTAL DOSE : 700 MG
     Route: 048
     Dates: start: 20210312, end: 20210318
  3. CYTARABINE. [Suspect]
     Active Substance: CYTARABINE
     Indication: ACUTE MYELOID LEUKAEMIA
     Dosage: 400 MG / D1 D2 D3 D4 D5 D6 D7 ~ 200 MG/M? ; TOTAL DOSE : 2800 MG
     Route: 041
     Dates: start: 20210305, end: 20210311

REACTIONS (1)
  - Colonic abscess [Recovering/Resolving]

NARRATIVE: CASE EVENT DATE: 20210314
